FAERS Safety Report 8571154-0 (Version None)
Quarter: 2012Q3

REPORT INFORMATION
  Report Type: 
  Country: None (occurrence: None)
  Receive Date: 20120806
  Receipt Date: 20120730
  Transmission Date: 20120928
  Serious: Yes (Disabling)
  Sender: FDA-Public Use
  Company Number: US-PFIZER INC-2012184769

PATIENT
  Sex: Female
  Weight: 54 kg

DRUGS (7)
  1. SOMA [Concomitant]
     Indication: MUSCLE DISORDER
     Dosage: UNK
  2. PERCOCET [Concomitant]
     Indication: NEURALGIA
     Dosage: UNK
  3. TRAZODONE [Concomitant]
     Indication: SLEEP DISORDER
     Dosage: UNK
  4. DYAZIDE [Concomitant]
     Indication: HYPERTENSION
     Dosage: UNK
  5. LYRICA [Suspect]
  6. LYRICA [Suspect]
  7. LYRICA [Suspect]
     Indication: NEUROPATHY PERIPHERAL
     Dosage: 150 MG, 2X/DAY
     Route: 048
     Dates: start: 20120201, end: 20120701

REACTIONS (2)
  - PRODUCT EXPIRATION DATE ISSUE [None]
  - DRUG INEFFECTIVE [None]
